FAERS Safety Report 8097458-6 (Version None)
Quarter: 2012Q1

REPORT INFORMATION
  Report Type: 
  Country: None (occurrence: None)
  Receive Date: 20120128
  Receipt Date: 20110707
  Transmission Date: 20120608
  Serious: No
  Sender: FDA-Public Use
  Company Number: US-ABBOTT-11P-163-0837183-00

PATIENT
  Sex: Male
  Weight: 74.002 kg

DRUGS (9)
  1. FISH OIL [Concomitant]
     Indication: MINERAL SUPPLEMENTATION
  2. AZOR [Concomitant]
     Indication: HYPERTENSION
  3. TRAMADOL HCL [Concomitant]
     Indication: PAIN
  4. HUMIRA [Suspect]
     Indication: PSORIATIC ARTHROPATHY
     Dates: start: 20110525
  5. FOLIC ACID [Concomitant]
     Indication: VITAMIN SUPPLEMENTATION
  6. METHOTREXATE [Concomitant]
     Indication: PSORIATIC ARTHROPATHY
  7. PLAQUINELLE [Concomitant]
     Indication: PSORIATIC ARTHROPATHY
  8. CO-Q-10 [Concomitant]
     Indication: SUPPLEMENTATION THERAPY
  9. PREDNISONE TAB [Concomitant]
     Indication: PSORIATIC ARTHROPATHY

REACTIONS (3)
  - SKIN LESION [None]
  - RASH MACULAR [None]
  - PAIN [None]
